FAERS Safety Report 5134397-4 (Version None)
Quarter: 2006Q4

REPORT INFORMATION
  Report Type: 
  Country: None (occurrence: None)
  Receive Date: 20061025
  Receipt Date: 20061010
  Transmission Date: 20070319
  Serious: Yes (Other)
  Sender: FDA-Public Use
  Company Number: HQWYE906111OCT06

PATIENT
  Sex: Male

DRUGS (4)
  1. ENBREL [Suspect]
     Indication: JUVENILE ARTHRITIS
     Route: 058
     Dates: start: 20030923, end: 20060911
  2. METHOTREXATE SODIUM [Concomitant]
     Dosage: 15 MG
     Route: 065
     Dates: start: 20020918
  3. ACIDUM FOLICUM [Concomitant]
     Route: 065
     Dates: start: 20020918
  4. MEDROL [Concomitant]
     Route: 065
     Dates: start: 20011201

REACTIONS (1)
  - COLITIS ULCERATIVE [None]
